FAERS Safety Report 8254936-4 (Version None)
Quarter: 2012Q1

REPORT INFORMATION
  Report Type: 
  Country: None (occurrence: None)
  Receive Date: 20120329
  Receipt Date: 20120319
  Transmission Date: 20120608
  Serious: Yes (Other)
  Sender: FDA-Public Use
  Company Number: LOC-00927

PATIENT
  Age: 55 Year
  Sex: Female

DRUGS (6)
  1. LOCOID LIPOCREAM [Suspect]
     Indication: BLEPHARITIS
     Dosage: BID, TOPICALLY
     Route: 061
     Dates: start: 20110127, end: 20110101
  2. LOCOID LIPOCREAM [Suspect]
     Indication: DERMATITIS
     Dosage: APPLY EVERY OTHER WEEK, ALTERNATING WITH PROMISEB, TOPICALLY
     Route: 061
     Dates: start: 20110601, end: 20110712
  3. LOCOID LIPOCREAM [Suspect]
     Indication: BLEPHARITIS
     Dosage: TOPICALLY
     Route: 061
     Dates: start: 20110613, end: 20110101
  4. LOCOID LIPOCREAM [Suspect]
     Indication: DERMATITIS
     Dosage: APPLY EVERY OTHER WEEK, ALTERNATING WITH LOCOID LIPOCREAM, TOPICALLY
     Route: 061
     Dates: start: 20110101, end: 20110701
  5. XOLEGEL [Suspect]
     Indication: BLEPHARITIS
     Dosage: TOPICALLY
     Dates: start: 20110714
  6. TOPAMAX [Concomitant]

REACTIONS (6)
  - BASAL CELL CARCINOMA [None]
  - APPLICATION SITE BURN [None]
  - APPLICATION SITE WARMTH [None]
  - APPLICATION SITE ERYTHEMA [None]
  - APPLICATION SITE SWELLING [None]
  - DRUG INEFFECTIVE [None]
